FAERS Safety Report 7049478-8 (Version None)
Quarter: 2010Q4

REPORT INFORMATION
  Report Type: 
  Country: None (occurrence: None)
  Receive Date: 20101007
  Receipt Date: 20100928
  Transmission Date: 20110411
  Serious: Yes (Hospitalization, Other)
  Sender: FDA-Public Use
  Company Number: 2010090075

PATIENT
  Age: 66 Year
  Sex: Female
  Weight: 90.7194 kg

DRUGS (6)
  1. FELBATOL [Suspect]
     Indication: CARBON MONOXIDE POISONING
     Dosage: 2400 MCG (1200 MG, 2 IN 1 D), ORAL
     Route: 048
     Dates: start: 20050101
  2. FRANKINCENSE [Concomitant]
  3. DEVIL'S CLAW (HARPAGOSIDE) [Concomitant]
  4. LEVOTHYROXINE SODIUM [Concomitant]
  5. CO Q10 (UBIQUINONE) [Concomitant]
  6. MULTI-VITAMIN [Concomitant]

REACTIONS (9)
  - AMNESIA [None]
  - ASTHENIA [None]
  - BRADYCARDIA [None]
  - CARDIOTOXICITY [None]
  - CHEST DISCOMFORT [None]
  - CHEST PAIN [None]
  - DEHYDRATION [None]
  - DYSPNOEA [None]
  - FATIGUE [None]
